FAERS Safety Report 5149835-0 (Version None)
Quarter: 2006Q4

REPORT INFORMATION
  Report Type: 
  Country: None (occurrence: None)
  Receive Date: 20061108
  Receipt Date: 20061023
  Transmission Date: 20070319
  Serious: No
  Sender: FDA-Public Use
  Company Number: C-06-0061

PATIENT
  Age: 43 Year
  Sex: Male
  Weight: 68.0396 kg

DRUGS (2)
  1. FERROUS SUL TAB [Suspect]
     Indication: SELF-MEDICATION
     Dosage: 2CC, ORALLY, SINGLE DOSE
     Route: 048
     Dates: start: 20061020
  2. PREVACID [Concomitant]

REACTIONS (2)
  - DIZZINESS [None]
  - SELF-MEDICATION [None]
